FAERS Safety Report 11584026 (Version 2)
Quarter: 2015Q4

REPORT INFORMATION
  Report Type: Spontaneous
  Country: DE (occurrence: DE)
  Receive Date: 20151001
  Receipt Date: 20151130
  Transmission Date: 20160304
  Serious: Yes (Life-Threatening, Hospitalization)
  Sender: FDA-Public Use
  Company Number: DE-SA-2015SA150858

PATIENT
  Age: 77 Year
  Sex: Female
  Weight: 70 kg

DRUGS (10)
  1. MULTAQ [Suspect]
     Active Substance: DRONEDARONE
     Indication: ATRIAL FIBRILLATION
     Route: 048
     Dates: start: 20150907, end: 20150909
  2. ENALAPRIL [Concomitant]
     Active Substance: ENALAPRIL
  3. HYDROCHLOROTHIAZIDE. [Concomitant]
     Active Substance: HYDROCHLOROTHIAZIDE
  4. BISOPROLOL [Concomitant]
     Active Substance: BISOPROLOL
  5. KALIUM [Concomitant]
     Active Substance: POTASSIUM CHLORIDE
  6. MONO-EMBOLEX [Concomitant]
     Active Substance: CERTOPARIN SODIUM
  7. AMIODARONE [Concomitant]
     Active Substance: AMIODARONE
  8. MULTAQ [Suspect]
     Active Substance: DRONEDARONE
     Indication: TACHYCARDIA PAROXYSMAL
     Route: 048
     Dates: start: 20150907, end: 20150909
  9. OMEPRAZOLE. [Concomitant]
     Active Substance: OMEPRAZOLE
  10. SIMVASTATIN. [Concomitant]
     Active Substance: SIMVASTATIN

REACTIONS (14)
  - Liver injury [Recovering/Resolving]
  - Nausea [Recovered/Resolved]
  - Blood lactic acid increased [Recovered/Resolved]
  - Pain [Recovered/Resolved]
  - Blood pressure decreased [Recovered/Resolved]
  - Vomiting [Unknown]
  - Vomiting [Unknown]
  - Dyspnoea [Recovered/Resolved]
  - Blood creatinine increased [Recovered/Resolved]
  - Heart rate decreased [Unknown]
  - Acute kidney injury [Recovering/Resolving]
  - Retching [Recovered/Resolved]
  - Hepatic enzyme increased [Recovered/Resolved]
  - Circulatory collapse [Unknown]

NARRATIVE: CASE EVENT DATE: 20150907
